FAERS Safety Report 9444880 (Version 2)
Quarter: 2013Q4

REPORT INFORMATION
  Report Type: Spontaneous
  Country: US (occurrence: US)
  Receive Date: 20130807
  Receipt Date: 20131126
  Transmission Date: 20140711
  Serious: Yes (Other)
  Sender: FDA-Public Use
  Company Number: US-FRI-1000047467

PATIENT
  Age: 41 Year
  Sex: Female
  Weight: 72.3 kg

DRUGS (4)
  1. VIIBRYD [Suspect]
     Indication: DEPRESSION
     Dosage: 10 MG
     Route: 048
     Dates: start: 20120802, end: 20120808
  2. VIIBRYD [Suspect]
     Dosage: 20 MG
     Route: 048
     Dates: start: 20120809, end: 20120815
  3. VIIBRYD [Suspect]
     Indication: DEPRESSION
     Dosage: 40 MG
     Route: 048
     Dates: start: 20120816, end: 20130726
  4. VIIBRYD [Suspect]
     Indication: DEPRESSION
     Dosage: 20 MG
     Route: 048
     Dates: start: 20130727, end: 20130815

REACTIONS (2)
  - Loss of consciousness [Recovered/Resolved]
  - Convulsion [Recovered/Resolved]
